FAERS Safety Report 19160642 (Version 1)
Quarter: 2021Q2

REPORT INFORMATION
  Report Type: Spontaneous
  Country: US (occurrence: US)
  Receive Date: 20210421
  Receipt Date: 20210421
  Transmission Date: 20210717
  Serious: No
  Sender: FDA-Public Use
  Company Number: US-CIPLA LTD.-2021US02108

PATIENT

DRUGS (1)
  1. DIMETHYL FUMARATE [Suspect]
     Active Substance: DIMETHYL FUMARATE
     Indication: PRODUCT USED FOR UNKNOWN INDICATION
     Dosage: UNK
     Route: 065

REACTIONS (10)
  - Urticaria [Unknown]
  - Visual impairment [Unknown]
  - Distractibility [Unknown]
  - Peroneal nerve palsy [Unknown]
  - Tinnitus [Unknown]
  - Cognitive disorder [Unknown]
  - Migraine [Unknown]
  - Flushing [Unknown]
  - Attention deficit hyperactivity disorder [Unknown]
  - Muscular weakness [Unknown]
